FAERS Safety Report 23077925 (Version 1)
Quarter: 2023Q4

REPORT INFORMATION
  Report Type: Spontaneous
  Country: US (occurrence: US)
  Receive Date: 20231018
  Receipt Date: 20231018
  Transmission Date: 20240110
  Serious: No
  Sender: FDA-Public Use
  Company Number: US-009507513-2309USA008098

PATIENT
  Age: 4 Year
  Sex: Female

DRUGS (3)
  1. TEMODAR [Suspect]
     Active Substance: TEMOZOLOMIDE
     Indication: Undifferentiated sarcoma
  2. ERLOTINIB [Suspect]
     Active Substance: ERLOTINIB
     Indication: Undifferentiated sarcoma
  3. IRINOTECAN [Suspect]
     Active Substance: IRINOTECAN
     Indication: Undifferentiated sarcoma

REACTIONS (1)
  - Off label use [Unknown]
